FAERS Safety Report 25918080 (Version 2)
Quarter: 2025Q4

REPORT INFORMATION
  Report Type: Spontaneous
  Country: EU (occurrence: EU)
  Receive Date: 20251014
  Receipt Date: 20251110
  Transmission Date: 20260117
  Serious: Yes (Other)
  Sender: TEVA
  Company Number: EU-TEVA-VS-3381099

PATIENT
  Age: 57 Year
  Sex: Male

DRUGS (8)
  1. TRABECTEDIN [Suspect]
     Active Substance: TRABECTEDIN
     Indication: Neurofibrosarcoma
     Dosage: CONTINUOUS INFUSION OVER 24H EVERY 21 DAYS
     Route: 065
     Dates: start: 202205
  2. GEMCITABINE [Suspect]
     Active Substance: GEMCITABINE
     Indication: Neurofibrosarcoma
     Dosage: ON DAYS 1 AND 8, EVERY 21 DAYS
     Route: 065
     Dates: start: 202405, end: 202409
  3. PAZOPANIB [Suspect]
     Active Substance: PAZOPANIB
     Indication: Neurofibrosarcoma
     Route: 065
     Dates: start: 2023, end: 2023
  4. PAZOPANIB [Suspect]
     Active Substance: PAZOPANIB
     Indication: Neurofibrosarcoma
     Route: 065
     Dates: start: 2023
  5. PAZOPANIB [Suspect]
     Active Substance: PAZOPANIB
     Indication: Neurofibrosarcoma
     Route: 065
     Dates: start: 202305, end: 2023
  6. PAZOPANIB [Suspect]
     Active Substance: PAZOPANIB
     Indication: Neurofibrosarcoma
     Route: 065
     Dates: start: 2023, end: 2023
  7. CARBOPLATIN [Concomitant]
     Active Substance: CARBOPLATIN
     Indication: Metastases to lung
     Route: 065
     Dates: start: 202403, end: 202405
  8. ETOPOSIDE [Concomitant]
     Active Substance: ETOPOSIDE
     Indication: Neurofibrosarcoma
     Route: 065
     Dates: start: 202403, end: 202405

REACTIONS (5)
  - Cancer fatigue [Unknown]
  - Nausea [Unknown]
  - Drug ineffective [Unknown]
  - Palmar-plantar erythrodysaesthesia syndrome [Unknown]
  - Dysgeusia [Unknown]

NARRATIVE: CASE EVENT DATE: 20230101
